FAERS Safety Report 13263367 (Version 1)
Quarter: 2017Q1

REPORT INFORMATION
  Report Type: Spontaneous
  Country: US (occurrence: US)
  Receive Date: 20170223
  Receipt Date: 20170223
  Transmission Date: 20170428
  Serious: No
  Sender: FDA-Public Use
  Company Number: US-BAYER-2017-034508

PATIENT
  Age: 77 Year
  Sex: Female
  Weight: 73 kg

DRUGS (1)
  1. MIRALAX [Suspect]
     Active Substance: POLYETHYLENE GLYCOL 3350
     Dosage: 1 DF, UNK
     Route: 048

REACTIONS (4)
  - Product quality issue [Unknown]
  - Product solubility abnormal [Unknown]
  - Product taste abnormal [Unknown]
  - Poor quality drug administered [Unknown]

NARRATIVE: CASE EVENT DATE: 20170219
